FAERS Safety Report 6526957-0 (Version None)
Quarter: 2010Q1

REPORT INFORMATION
  Report Type: 
  Country: None (occurrence: None)
  Receive Date: 20100105
  Receipt Date: 20091221
  Transmission Date: 20100710
  Serious: No
  Sender: FDA-Public Use
  Company Number: US-B.I. PHARMACEUTICALS,INC./RIDGEFIELD-2009-BP-14031BP

PATIENT
  Age: 67 Year
  Sex: Male

DRUGS (11)
  1. FLOMAX [Suspect]
     Indication: BENIGN PROSTATIC HYPERPLASIA
     Dosage: 0.8 MG
     Route: 048
     Dates: start: 20060101
  2. FLOMAX [Suspect]
     Indication: DYSURIA
  3. DOXEPIN HCL [Concomitant]
  4. LISINOPRIL [Concomitant]
  5. TARGRETIN [Concomitant]
  6. TRICOR [Concomitant]
  7. INTERFERON [Concomitant]
  8. SYNTHROID [Concomitant]
  9. LOVAZA [Concomitant]
  10. SERTRALINE HCL [Concomitant]
  11. HYDROCODONE [Concomitant]

REACTIONS (1)
  - URINARY TRACT DISORDER [None]
